FAERS Safety Report 4647663-3 (Version None)
Quarter: 2005Q2

REPORT INFORMATION
  Report Type: 
  Country: None (occurrence: None)
  Receive Date: 20050426
  Receipt Date: 20050418
  Transmission Date: 20051028
  Serious: Yes (Life-Threatening, Hospitalization)
  Sender: FDA-Public Use
  Company Number: 2005-127569-NL

PATIENT
  Age: 21 Year
  Sex: Female
  Weight: 61.4 kg

DRUGS (1)
  1. NUVARING [Suspect]
     Indication: CONTRACEPTION
     Dosage: VAGINAL
     Route: 067
     Dates: start: 20041101, end: 20050106

REACTIONS (4)
  - CEREBRAL THROMBOSIS [None]
  - COUGH [None]
  - FATIGUE [None]
  - SYNCOPE [None]
